FAERS Safety Report 16449098 (Version 1)
Quarter: 2019Q2

REPORT INFORMATION
  Report Type: Spontaneous
  Country: US (occurrence: US)
  Receive Date: 20190619
  Receipt Date: 20190619
  Transmission Date: 20190711
  Serious: No
  Sender: FDA-Public Use
  Company Number: US-ASTRAZENECA-2019SE77659

PATIENT
  Sex: Male
  Weight: 65.8 kg

DRUGS (1)
  1. ONGLYZA [Suspect]
     Active Substance: SAXAGLIPTIN HYDROCHLORIDE
     Indication: TYPE 2 DIABETES MELLITUS
     Route: 048
     Dates: end: 20190520

REACTIONS (3)
  - Peripheral swelling [Recovered/Resolved]
  - Asthenia [Recovered/Resolved]
  - Heart rate increased [Recovered/Resolved]
